FAERS Safety Report 23317043 (Version 6)
Quarter: 2024Q4

REPORT INFORMATION
  Report Type: Spontaneous
  Country: US (occurrence: US)
  Receive Date: 20231219
  Receipt Date: 20241021
  Transmission Date: 20250115
  Serious: Yes (Hospitalization)
  Sender: ROCHE
  Company Number: US-ROCHE-3417375

PATIENT
  Age: 19 Year
  Sex: Male

DRUGS (1)
  1. HEMLIBRA [Suspect]
     Active Substance: EMICIZUMAB-KXWH
     Indication: Factor VIII deficiency
     Dosage: STRENGTH : 105MG/0.7ML
     Route: 058
     Dates: start: 202307

REACTIONS (2)
  - Haemorrhage [Unknown]
  - Muscle haemorrhage [Not Recovered/Not Resolved]

NARRATIVE: CASE EVENT DATE: 20240317
